FAERS Safety Report 25110687 (Version 1)
Quarter: 2025Q1

REPORT INFORMATION
  Report Type: Spontaneous
  Country: US (occurrence: US)
  Receive Date: 20250324
  Receipt Date: 20250324
  Transmission Date: 20250409
  Serious: No
  Sender: TEVA
  Company Number: US-TEVA-VS-3307803

PATIENT
  Sex: Male

DRUGS (1)
  1. TESTOSTERONE [Suspect]
     Active Substance: TESTOSTERONE
     Indication: Product used for unknown indication
     Route: 061

REACTIONS (4)
  - Circumstance or information capable of leading to medication error [Unknown]
  - Product odour abnormal [Unknown]
  - Product use issue [Unknown]
  - Feeling abnormal [Unknown]
